FAERS Safety Report 13746287 (Version 1)
Quarter: 2017Q3

REPORT INFORMATION
  Report Type: Spontaneous
  Country: DE (occurrence: DE)
  Receive Date: 20170712
  Receipt Date: 20170712
  Transmission Date: 20171127
  Serious: Yes (Death, Other)
  Sender: FDA-Public Use
  Company Number: DE-ASTRAZENECA-2017SE69884

PATIENT
  Age: 31714 Day
  Sex: Male

DRUGS (1)
  1. BRILIQUE [Suspect]
     Active Substance: TICAGRELOR
     Route: 048

REACTIONS (24)
  - Internal haemorrhage [Fatal]
  - Intervertebral discitis [Unknown]
  - Lung infiltration [Unknown]
  - Metastasis [Unknown]
  - Atypical pneumonia [Unknown]
  - Neoplasm malignant [Unknown]
  - Cardiac ventricular thrombosis [Unknown]
  - Pericardial effusion [Unknown]
  - Peritonitis [Unknown]
  - Septic embolus [Unknown]
  - Mitral valve incompetence [Unknown]
  - Sepsis [Unknown]
  - Ileus [Unknown]
  - Atelectasis [Unknown]
  - Reperfusion arrhythmia [Unknown]
  - Retroperitoneal abscess [Fatal]
  - Psoas abscess [Unknown]
  - Gastrointestinal perforation [Unknown]
  - Pneumonia fungal [Unknown]
  - Arthralgia [Unknown]
  - Pleural effusion [Unknown]
  - Renal cyst [Unknown]
  - Ascites [Unknown]
  - Tricuspid valve incompetence [Unknown]

NARRATIVE: CASE EVENT DATE: 20170601
